FAERS Safety Report 4646068-9 (Version None)
Quarter: 2005Q2

REPORT INFORMATION
  Report Type: 
  Country: None (occurrence: None)
  Receive Date: 20050427
  Receipt Date: 20040309
  Transmission Date: 20051028
  Serious: Yes (Other)
  Sender: FDA-Public Use
  Company Number: US-GLAXOSMITHKLINE-A0501953A

PATIENT
  Age: 78 Year
  Sex: Female
  Weight: 65.9 kg

DRUGS (2)
  1. ZOFRAN [Suspect]
     Route: 042
  2. CHEMOTHERAPY [Concomitant]

REACTIONS (1)
  - PRURITUS [None]
